FAERS Safety Report 4602301-0 (Version None)
Quarter: 2005Q1

REPORT INFORMATION
  Report Type: 
  Country: None (occurrence: None)
  Receive Date: 20050223
  Receipt Date: 20041227
  Transmission Date: 20050727
  Serious: No
  Sender: FDA-Public Use
  Company Number: 211409

PATIENT
  Age: 39 Year
  Sex: Female

DRUGS (2)
  1. RAPTIVA [Suspect]
     Indication: PSORIASIS
     Dosage: SEE IMAGE
     Route: 058
     Dates: start: 20040701, end: 20040701
  2. RAPTIVA [Suspect]
     Indication: PSORIASIS
     Dosage: SEE IMAGE
     Route: 058
     Dates: end: 20041005

REACTIONS (5)
  - ARTHRALGIA [None]
  - DIZZINESS [None]
  - MYALGIA [None]
  - PSORIASIS [None]
  - RASH [None]
